FAERS Safety Report 5313478-6 (Version None)
Quarter: 2007Q1

REPORT INFORMATION
  Report Type: 
  Country: None (occurrence: None)
  Receive Date: 20070130
  Receipt Date: 20060710
  Transmission Date: 20070707
  Serious: Yes (Hospitalization)
  Sender: FDA-Public Use
  Company Number: 146488USA

PATIENT
  Sex: Female

DRUGS (16)
  1. COPAXONE [Suspect]
     Indication: MULTIPLE SCLEROSIS
     Dosage: (20 MG), SUBCUTANEOUS
     Route: 058
     Dates: start: 20030411
  2. TRAMADOL HCL [Concomitant]
  3. ACTONEL [Concomitant]
  4. NEXIUM [Concomitant]
  5. LEXAPRO [Concomitant]
  6. LORAZEPAM [Concomitant]
  7. MODAFINIL [Concomitant]
  8. OXYTROL [Concomitant]
  9. SALBUTAMOL [Concomitant]
  10. SPIRIVA [Concomitant]
  11. ASPIRIN [Concomitant]
  12. LOVASTATIN [Concomitant]
  13. FUROSEMIDE [Concomitant]
  14. ADVAIR DISKUS 100/50 [Concomitant]
  15. NAPROXEN [Concomitant]
  16. MIRAPEX [Concomitant]

REACTIONS (4)
  - CONDITION AGGRAVATED [None]
  - DEPRESSION [None]
  - MULTIPLE SCLEROSIS [None]
  - MULTIPLE SCLEROSIS RELAPSE [None]
